FAERS Safety Report 12577103 (Version 3)
Quarter: 2017Q2

REPORT INFORMATION
  Report Type: Spontaneous
  Country: BR (occurrence: BR)
  Receive Date: 20160720
  Receipt Date: 20170412
  Transmission Date: 20170830
  Serious: Yes (Other)
  Sender: FDA-Public Use
  Company Number: BR-ABBVIE-16P-020-1681176-00

PATIENT
  Age: 14 Year
  Sex: Female
  Weight: 37 kg

DRUGS (6)
  1. DEPAKOTE [Suspect]
     Active Substance: DIVALPROEX SODIUM
     Dosage: DAILY DOSE: 125 MG IN THE MORNING, 250 MG AT NIGHT
     Route: 065
  2. DEPAKOTE [Suspect]
     Active Substance: DIVALPROEX SODIUM
     Indication: PRODUCT USED FOR UNKNOWN INDICATION
     Dosage: AT AFTERNOON
     Route: 065
  3. LAMOTRIGINE. [Concomitant]
     Active Substance: LAMOTRIGINE
     Indication: PRODUCT USED FOR UNKNOWN INDICATION
     Dosage: DAILY DOSE: 75 MG (25 MG IN THE MORNING  AND 50 MG UNKNOWN)
  4. DEPAKOTE [Suspect]
     Active Substance: DIVALPROEX SODIUM
     Indication: CEREBROVASCULAR ACCIDENT
     Dosage: DAILY DOSE: 125 MG IN THE MORNING, 125 MG AT NIGHT
     Route: 065
  5. DEPAKOTE [Suspect]
     Active Substance: DIVALPROEX SODIUM
     Route: 065
  6. DEPAKOTE [Suspect]
     Active Substance: DIVALPROEX SODIUM
     Dosage: DAILY DOSE: 500 MG (1 TAB MORNING, 1 TAB AT NIGHT)
     Route: 065

REACTIONS (2)
  - Product use issue [Unknown]
  - Seizure [Unknown]
